FAERS Safety Report 4773844-4 (Version None)
Quarter: 2005Q3

REPORT INFORMATION
  Report Type: 
  Country: None (occurrence: None)
  Receive Date: 20050919
  Receipt Date: 20050902
  Transmission Date: 20060218
  Serious: Yes (Other)
  Sender: FDA-Public Use
  Company Number: 12275

PATIENT
  Age: 57 Year
  Sex: Male

DRUGS (8)
  1. METHOTREXATE [Suspect]
  2. HUMIRA [Suspect]
     Indication: RHEUMATOID ARTHRITIS
     Dosage: 40 MG PER_CYCLE
     Dates: start: 20040901
  3. MELOXICAM [Concomitant]
  4. LANSOPRAZOLE [Concomitant]
  5. CETIRIZINE HCL [Concomitant]
  6. ATENOLOL [Concomitant]
  7. BENDROFLUMETHIAZIDE [Concomitant]
  8. ACETAMINOPHEN W/ PROPOXYPHENE HCL [Concomitant]

REACTIONS (2)
  - BONE INFECTION [None]
  - BURSITIS INFECTIVE [None]
